FAERS Safety Report 9176977 (Version 1)
Quarter: 2013Q1

REPORT INFORMATION
  Report Type: Spontaneous
  Country: NL (occurrence: NL)
  Receive Date: 20130321
  Receipt Date: 20130321
  Transmission Date: 20140127
  Serious: Yes (Life-Threatening, Hospitalization)
  Sender: FDA-Public Use
  Company Number: PHHY2013NL027356

PATIENT
  Sex: Female

DRUGS (2)
  1. DICLOFENAC [Suspect]
     Indication: MIGRAINE
     Dosage: UNK UKN, PRN
     Dates: start: 200407
  2. DIANE 35 [Interacting]
     Indication: ACNE
     Dosage: 1 DF, QD
     Route: 048
     Dates: start: 1990, end: 20040828

REACTIONS (3)
  - Cerebral infarction [Recovered/Resolved with Sequelae]
  - Cerebrovascular accident [Recovered/Resolved with Sequelae]
  - Drug interaction [Recovered/Resolved with Sequelae]
